FAERS Safety Report 25235006 (Version 1)
Quarter: 2025Q2

REPORT INFORMATION
  Report Type: Spontaneous
  Country: IT (occurrence: IT)
  Receive Date: 20250424
  Receipt Date: 20250424
  Transmission Date: 20250716
  Serious: Yes (Death, Hospitalization, Other)
  Sender: PFIZER
  Company Number: None

PATIENT
  Age: 69 Year
  Sex: Female

DRUGS (3)
  1. CARBOPLATIN [Suspect]
     Active Substance: CARBOPLATIN
     Dosage: AUC 5 EVERT 21 DAYS, APPLIED DOSE IS REDUCED BY 30%
     Route: 042
     Dates: start: 20250213, end: 20250213
  2. PEMETREXED [Suspect]
     Active Substance: PEMETREXED
     Indication: Lung carcinoma cell type unspecified stage IV
     Dosage: 500 MG/M2, EVERY 21 DAYS (APPLIED DOSE IS REDUCED BY 20%)
     Route: 042
     Dates: start: 20250213, end: 20250213
  3. KEYTRUDA [Suspect]
     Active Substance: PEMBROLIZUMAB
     Indication: Lung carcinoma cell type unspecified stage IV
     Dosage: 300 MG, EVERY 21 DAYS
     Route: 042
     Dates: start: 20250213, end: 20250213

REACTIONS (7)
  - Pneumonitis [Fatal]
  - Atrial thrombosis [Fatal]
  - Disseminated intravascular coagulation [Fatal]
  - Respiratory failure [Fatal]
  - Thrombocytopenia [Not Recovered/Not Resolved]
  - Venous thrombosis [Not Recovered/Not Resolved]
  - Hypokalaemia [Recovering/Resolving]

NARRATIVE: CASE EVENT DATE: 20250226
